FAERS Safety Report 9217111 (Version 1)
Quarter: 2013Q2

REPORT INFORMATION
  Report Type: Spontaneous
  Country: US (occurrence: US)
  Receive Date: 20130408
  Receipt Date: 20130408
  Transmission Date: 20140414
  Serious: No
  Sender: FDA-Public Use
  Company Number: US-B.I. PHARMACEUTICALS,INC./RIDGEFIELD-2013-BI-08383BP

PATIENT
  Age: 78 Year
  Sex: Female

DRUGS (13)
  1. PRADAXA [Suspect]
     Indication: ATRIAL FIBRILLATION
     Dosage: 150 MG
     Route: 048
     Dates: start: 2012
  2. SPIRONOLACTONE [Concomitant]
     Indication: HYPERTENSION
     Dosage: 25 MG
     Route: 048
  3. LEXAPRO [Concomitant]
     Indication: DEPRESSION
     Dosage: 5 MG
     Route: 048
  4. CALCIUM [Concomitant]
     Dosage: 1200 MG
     Route: 048
  5. OMEPRAZOLE [Concomitant]
     Indication: GASTROOESOPHAGEAL REFLUX DISEASE
     Dosage: 40 MG
     Route: 048
  6. ONEA-DAY VITAMINS [Concomitant]
     Route: 048
  7. KLONOPIN [Concomitant]
     Indication: ANXIETY
     Dosage: 1 MG
     Route: 048
  8. PRAVACHOL [Concomitant]
     Indication: BLOOD CHOLESTEROL INCREASED
     Dosage: 40 MG
     Route: 048
  9. LASIX [Concomitant]
     Indication: HYPERTENSION
     Dosage: 40 MG
     Route: 048
  10. LOSARTIN [Concomitant]
     Indication: HYPERTENSION
     Dosage: 50 MG
     Route: 048
  11. COREG [Concomitant]
     Indication: HYPERTENSION
     Dosage: 50 MG
     Route: 048
  12. VITAMIN D3 [Concomitant]
     Indication: VITAMIN D DECREASED
     Dosage: 1000 MG
     Route: 048
  13. DULERA [Concomitant]
     Indication: CHRONIC OBSTRUCTIVE PULMONARY DISEASE
     Route: 055

REACTIONS (2)
  - Nasopharyngitis [Recovered/Resolved]
  - Cough [Recovered/Resolved]
